FAERS Safety Report 21726297 (Version 1)
Quarter: 2022Q4

REPORT INFORMATION
  Report Type: Spontaneous
  Country: US (occurrence: US)
  Receive Date: 20221214
  Receipt Date: 20221214
  Transmission Date: 20230113
  Serious: No
  Sender: FDA-Public Use
  Company Number: US-ALVOGEN-2022-ALVOGEN-120829

PATIENT
  Sex: Female

DRUGS (1)
  1. FENTANYL [Suspect]
     Active Substance: FENTANYL
     Indication: Product used for unknown indication
     Dosage: 50MCG/H?EXPIRATION DATE - 28-FEB-2025
     Route: 062

REACTIONS (3)
  - Drug ineffective [Unknown]
  - Device adhesion issue [Unknown]
  - Device malfunction [Unknown]
